FAERS Safety Report 10620676 (Version 1)
Quarter: 2014Q4

REPORT INFORMATION
  Report Type: Spontaneous
  Country: BE (occurrence: BE)
  Receive Date: 20141202
  Receipt Date: 20141202
  Transmission Date: 20150529
  Serious: Yes (Other)
  Sender: FDA-Public Use
  Company Number: PHHY2014BE156583

PATIENT
  Age: 54 Year
  Sex: Female

DRUGS (6)
  1. DEXAMETASON [Concomitant]
     Active Substance: DEXAMETHASONE
     Indication: PLASMA CELL MYELOMA
     Route: 065
  2. CLINDAMYCIN [Suspect]
     Active Substance: CLINDAMYCIN\CLINDAMYCIN PHOSPHATE
     Indication: PROPHYLAXIS
     Dosage: 900 MG, QD
     Route: 065
  3. MELPHALAN [Concomitant]
     Active Substance: MELPHALAN
     Indication: PLASMA CELL MYELOMA
     Route: 048
  4. THALIDOMIDE [Concomitant]
     Active Substance: THALIDOMIDE
     Indication: PLASMA CELL MYELOMA
     Dosage: 100 MG, QD
     Route: 048
  5. ZOLEDRONATE [Suspect]
     Active Substance: ZOLEDRONIC ACID
     Indication: PLASMA CELL MYELOMA
     Dosage: 4 MG, QW4
     Route: 042
  6. ISO-BETADINE [Suspect]
     Active Substance: POVIDONE-IODINE
     Indication: PROPHYLAXIS
     Route: 065

REACTIONS (2)
  - Exposed bone in jaw [Unknown]
  - Osteonecrosis of jaw [Recovered/Resolved]
